FAERS Safety Report 15419303 (Version 1)
Quarter: 2018Q3

REPORT INFORMATION
  Report Type: Spontaneous
  Country: US (occurrence: US)
  Receive Date: 20180924
  Receipt Date: 20180924
  Transmission Date: 20181010
  Serious: No
  Sender: FDA-Public Use
  Company Number: US-PFIZER INC-2017524591

PATIENT
  Age: 12 Year
  Sex: Female
  Weight: 58.51 kg

DRUGS (5)
  1. LEVOTHYROXINE. [Concomitant]
     Active Substance: LEVOTHYROXINE
     Indication: HYPOTHYROIDISM
     Dosage: 50 UG, ONCE A DAY
     Route: 048
     Dates: start: 2015
  2. GENOTROPIN [Suspect]
     Active Substance: SOMATROPIN
     Dosage: 12 MG, UNK
     Dates: start: 20171205
  3. VITAMIN D [ERGOCALCIFEROL] [Concomitant]
     Indication: CALCIUM DEFICIENCY
     Dosage: 2000 IU, EVERY DAY
     Route: 048
  4. GENOTROPIN [Suspect]
     Active Substance: SOMATROPIN
     Dosage: 3.2 MG, 6 DAYS A WEEK
     Dates: start: 20180102
  5. ESTRADIOL. [Concomitant]
     Active Substance: ESTRADIOL
     Dosage: 0.025 MG, UNK (NEW PATCHES PLACED ON MONDAY AND THURSDAY)

REACTIONS (1)
  - Insulin-like growth factor increased [Unknown]

NARRATIVE: CASE EVENT DATE: 20180516
